FAERS Safety Report 8918829 (Version 1)
Quarter: 2012Q4

REPORT INFORMATION
  Report Type: Spontaneous
  Country: US (occurrence: None)
  Receive Date: 20121115
  Receipt Date: 20121115
  Transmission Date: 20130627
  Serious: Yes (Life-Threatening, Hospitalization)
  Sender: FDA-Public Use
  Company Number: None

PATIENT
  Age: 64 Year
  Sex: Male
  Weight: 77.3 kg

DRUGS (1)
  1. ALTEPLASE [Suspect]
     Indication: ISCHEMIC STROKE
     Route: 042

REACTIONS (3)
  - Subarachnoid haemorrhage [None]
  - Brain oedema [None]
  - Intracranial pressure increased [None]
